FAERS Safety Report 6579050-5 (Version None)
Quarter: 2010Q1

REPORT INFORMATION
  Report Type: 
  Country: None (occurrence: None)
  Receive Date: 20100212
  Receipt Date: 20100201
  Transmission Date: 20100710
  Serious: Yes (Other)
  Sender: FDA-Public Use
  Company Number: PHHY2010DE05790

PATIENT
  Age: 60 Year
  Sex: Male

DRUGS (2)
  1. ICANDRA [Suspect]
     Indication: DIABETES MELLITUS
     Dosage: UNK
     Route: 048
  2. CHEMOTHERAPEUTICS NOS [Concomitant]
     Indication: BRONCHIAL CARCINOMA
     Dosage: UNK

REACTIONS (2)
  - CONSTIPATION [None]
  - LIPASE INCREASED [None]
